FAERS Safety Report 7957794-8 (Version None)
Quarter: 2011Q4

REPORT INFORMATION
  Report Type: 
  Country: None (occurrence: None)
  Receive Date: 20111205
  Receipt Date: 20111128
  Transmission Date: 20120403
  Serious: Yes (Other)
  Sender: FDA-Public Use
  Company Number: US-JNJFOC-20111112173

PATIENT
  Age: 38 Year
  Sex: Female

DRUGS (5)
  1. INVEGA [Suspect]
     Indication: BIPOLAR DISORDER
     Route: 048
  2. INVEGA SUSTENNA [Suspect]
     Indication: BIPOLAR DISORDER
     Route: 030
     Dates: start: 20100101
  3. INVEGA SUSTENNA [Suspect]
     Indication: POST-TRAUMATIC STRESS DISORDER
     Route: 030
     Dates: start: 20100101
  4. INVEGA [Suspect]
     Indication: POST-TRAUMATIC STRESS DISORDER
     Route: 048
  5. SANDOSTATIN [Concomitant]
     Route: 058

REACTIONS (4)
  - NEOPLASM SKIN [None]
  - HEPATIC NEOPLASM [None]
  - INJECTION SITE MASS [None]
  - RENAL DISORDER [None]
